FAERS Safety Report 18460751 (Version 2)
Quarter: 2020Q4

REPORT INFORMATION
  Report Type: Spontaneous
  Country: US (occurrence: US)
  Receive Date: 20201104
  Receipt Date: 20201118
  Transmission Date: 20210114
  Serious: Yes (Hospitalization, Other)
  Sender: FDA-Public Use
  Company Number: US-AUROBINDO-AUR-APL-2020-053986

PATIENT
  Age: 40 Year
  Sex: Female
  Weight: 82.55 kg

DRUGS (4)
  1. EXEMESTANE. [Concomitant]
     Active Substance: EXEMESTANE
     Indication: THERAPEUTIC OVARIAN SUPPRESSION
     Dosage: UNK
     Route: 065
  2. GOSERELIN [Concomitant]
     Active Substance: GOSERELIN
     Indication: THERAPEUTIC OVARIAN SUPPRESSION
     Dosage: 3.6 MILLIGRAM, 28 DAYS
     Route: 065
  3. ZOLEDRONIC ACID [Suspect]
     Active Substance: ZOLEDRONIC ACID
     Indication: THERAPEUTIC OVARIAN SUPPRESSION
     Dosage: 1 DOSAGE FORM
     Route: 042
  4. ZOMETA [Suspect]
     Active Substance: ZOLEDRONIC ACID
     Indication: THERAPEUTIC OVARIAN SUPPRESSION
     Dosage: 4 MILLIGRAM, TOTAL
     Route: 065

REACTIONS (1)
  - Rhabdomyolysis [Recovered/Resolved]
